FAERS Safety Report 26213879 (Version 1)
Quarter: 2025Q4

REPORT INFORMATION
  Report Type: Spontaneous
  Country: EU (occurrence: EU)
  Receive Date: 20251230
  Receipt Date: 20251230
  Transmission Date: 20260118
  Serious: Yes (Life-Threatening, Hospitalization, Other)
  Sender: PURDUE
  Company Number: EU-SOL-20250239

PATIENT

DRUGS (9)
  1. MORPHINE SULFATE [Suspect]
     Active Substance: MORPHINE SULFATE
     Indication: Pulmonary oedema
     Dosage: 2 MILLIGRAM
     Route: 064
  2. MORPHINE SULFATE [Suspect]
     Active Substance: MORPHINE SULFATE
     Indication: Pulmonary oedema
     Dosage: 2 MILLIGRAM
     Route: 064
  3. OXYGEN [Suspect]
     Active Substance: OXYGEN
     Indication: Pulmonary oedema
     Dosage: UNK
     Route: 064
  4. THIOPENTAL [Suspect]
     Active Substance: THIOPENTAL
     Indication: Acute respiratory failure
     Dosage: 400 MILLIGRAM
     Route: 064
  5. FENTANYL [Suspect]
     Active Substance: FENTANYL
     Indication: Acute respiratory failure
     Dosage: 200 MCG
     Route: 064
  6. ROCURONIUM BROMIDE [Suspect]
     Active Substance: ROCURONIUM BROMIDE
     Indication: Acute respiratory failure
     Dosage: 100 MILLIGRAM
     Route: 064
  7. EPINEPHRINE [Suspect]
     Active Substance: EPINEPHRINE
     Indication: Resuscitation
     Dosage: 2 MILLIGRAM
     Route: 064
  8. TORECAN [Suspect]
     Active Substance: THIETHYLPERAZINE MALATE
     Indication: Pulmonary oedema
     Dosage: 6.5 MILLIGRAM
     Route: 064
  9. FUROSEMIDE [Suspect]
     Active Substance: FUROSEMIDE
     Indication: Pulmonary oedema
     Dosage: 40 MILLIGRAM
     Route: 064

REACTIONS (3)
  - Foetal exposure during pregnancy [Recovering/Resolving]
  - Bradycardia neonatal [Recovering/Resolving]
  - Respiratory arrest [Recovering/Resolving]
